FAERS Safety Report 20610362 (Version 2)
Quarter: 2022Q2

REPORT INFORMATION
  Report Type: Spontaneous
  Country: US (occurrence: US)
  Receive Date: 20220318
  Receipt Date: 20220517
  Transmission Date: 20220720
  Serious: Yes (Other)
  Sender: FDA-Public Use
  Company Number: US-CELLTRION INC.-2022US003059

PATIENT

DRUGS (1)
  1. INFLECTRA [Suspect]
     Active Substance: INFLIXIMAB-DYYB
     Indication: Lung carcinoma cell type unspecified stage 0
     Route: 065

REACTIONS (2)
  - Lung carcinoma cell type unspecified stage 0 [Unknown]
  - Off label use [Unknown]
